FAERS Safety Report 5704417-4 (Version None)
Quarter: 2008Q2

REPORT INFORMATION
  Report Type: 
  Country: None (occurrence: None)
  Receive Date: 20080414
  Receipt Date: 20080402
  Transmission Date: 20081010
  Serious: Yes (Hospitalization)
  Sender: FDA-Public Use
  Company Number: B0515185A

PATIENT
  Age: 47 Year
  Sex: Female

DRUGS (5)
  1. AUGMENTIN '125' [Suspect]
     Indication: URINARY TRACT INFECTION
     Route: 048
     Dates: start: 20071218, end: 20071225
  2. MABTHERA [Suspect]
     Indication: RHEUMATOID ARTHRITIS
     Route: 042
     Dates: start: 20071218, end: 20071218
  3. DIAMICRON [Concomitant]
     Route: 048
     Dates: start: 20030101
  4. PREDNISONE [Concomitant]
     Indication: RHEUMATOID ARTHRITIS
     Route: 048
     Dates: start: 20060101
  5. METHOTREXATE [Concomitant]
     Indication: RHEUMATOID ARTHRITIS
     Route: 030
     Dates: start: 20060101

REACTIONS (5)
  - CONJUNCTIVAL IRRITATION [None]
  - DIARRHOEA [None]
  - PRURITUS [None]
  - URTICARIA [None]
  - VOMITING [None]
